FAERS Safety Report 6240579-0 (Version None)
Quarter: 2009Q2

REPORT INFORMATION
  Report Type: 
  Country: None (occurrence: None)
  Receive Date: 20090623
  Receipt Date: 20081013
  Transmission Date: 20091009
  Serious: No
  Sender: FDA-Public Use
  Company Number: US-ASTRAZENECA-2008UW22535

PATIENT
  Age: 90 Year
  Sex: Female

DRUGS (5)
  1. PULMICORT RESPULES [Suspect]
     Indication: BRONCHITIS
     Dosage: 0.5 MG/ 2 ML
     Route: 055
  2. HYZAAR [Concomitant]
  3. IPRATROPIUM BROMIDE [Concomitant]
  4. ALBUTEROL [Concomitant]
  5. ZOCOR [Concomitant]

REACTIONS (2)
  - DYSPHONIA [None]
  - MEDICATION ERROR [None]
